FAERS Safety Report 11341594 (Version 1)
Quarter: 2015Q3

REPORT INFORMATION
  Report Type: Spontaneous
  Country: US (occurrence: None)
  Receive Date: 20150803
  Receipt Date: 20150803
  Transmission Date: 20151125
  Serious: Yes (Disabling, Other)
  Sender: FDA-Public Use
  Company Number: None

PATIENT
  Age: 19 Year
  Sex: Female
  Weight: 68.04 kg

DRUGS (4)
  1. NEXPLANON [Concomitant]
     Active Substance: ETONOGESTREL
  2. NEXPLANON [Suspect]
     Active Substance: ETONOGESTREL
  3. TOPIRAMATE. [Concomitant]
     Active Substance: TOPIRAMATE
  4. BUTALBITOL [Concomitant]

REACTIONS (7)
  - Mood swings [None]
  - Diplopia [None]
  - Urticaria [None]
  - Migraine [None]
  - Memory impairment [None]
  - Seizure [None]
  - Weight increased [None]

NARRATIVE: CASE EVENT DATE: 20130911
